FAERS Safety Report 9255343 (Version 1)
Quarter: 2013Q2

REPORT INFORMATION
  Report Type: Spontaneous
  Country: US (occurrence: None)
  Receive Date: 20130423
  Receipt Date: 20130423
  Transmission Date: 20140414
  Serious: Yes (Hospitalization)
  Sender: FDA-Public Use
  Company Number: None

PATIENT
  Age: 63 Year
  Sex: Male
  Weight: 79.4 kg

DRUGS (2)
  1. OXYCODONE [Suspect]
     Indication: PAIN
     Route: 048
     Dates: start: 20130329, end: 20130401
  2. BACLOFEN [Suspect]
     Indication: PAIN
     Dosage: 5 MG OTHER PO
     Route: 048
     Dates: start: 20130329, end: 20130401

REACTIONS (4)
  - Mental status changes [None]
  - Confusional state [None]
  - Delirium [None]
  - Sedation [None]
